FAERS Safety Report 8822795 (Version 2)
Quarter: 2012Q4

REPORT INFORMATION
  Report Type: 
  Country: US (occurrence: US)
  Receive Date: 20121003
  Receipt Date: 20121105
  Transmission Date: 20130627
  Serious: Yes (Other)
  Sender: FDA-Public Use
  Company Number: US-ASTRAZENECA-2012SE74034

PATIENT
  Age: 77 Year
  Sex: Female

DRUGS (3)
  1. SYMBICORT [Suspect]
     Indication: CHRONIC OBSTRUCTIVE PULMONARY DISEASE
     Dosage: 160/4.5MCG 1 PUFF TWO TIMES A DAY
     Route: 055
  2. LISINOPRIL [Concomitant]
     Indication: HYPERTENSION
     Dosage: DAILY
     Route: 048
  3. VITAMINS [Concomitant]
     Dosage: DAILY
     Route: 048

REACTIONS (2)
  - Carpal tunnel syndrome [Unknown]
  - Off label use [Unknown]
